FAERS Safety Report 19951864 (Version 3)
Quarter: 2022Q2

REPORT INFORMATION
  Report Type: Spontaneous
  Country: US (occurrence: US)
  Receive Date: 20211013
  Receipt Date: 20220422
  Transmission Date: 20220720
  Serious: Yes (Other)
  Sender: FDA-Public Use
  Company Number: US-PFIZER INC-202101162109

PATIENT
  Age: 74 Year
  Sex: Male

DRUGS (21)
  1. INLYTA [Suspect]
     Active Substance: AXITINIB
     Indication: Malignant neoplasm of renal pelvis
     Dosage: 5 MG, 2X/DAY
     Route: 048
     Dates: start: 20210804, end: 20210911
  2. INLYTA [Suspect]
     Active Substance: AXITINIB
     Dosage: 5 MG, 2X/DAY
     Dates: start: 20210920
  3. INLYTA [Suspect]
     Active Substance: AXITINIB
     Dosage: ALTERNATING ONE PILL DAILY WITH 2 EVERY OTHER DAY
  4. CALCIUM [Concomitant]
     Active Substance: CALCIUM
     Dosage: UNK
  5. CIALIS [Concomitant]
     Active Substance: TADALAFIL
     Dosage: UNK
  6. FINASTERIDE [Concomitant]
     Active Substance: FINASTERIDE
     Dosage: UNK
  7. KEYTRUDA [Concomitant]
     Active Substance: PEMBROLIZUMAB
     Dosage: UNK
  8. MAGNESIUM [Concomitant]
     Active Substance: MAGNESIUM
     Dosage: UNK
  9. METFORMIN [Concomitant]
     Active Substance: METFORMIN HYDROCHLORIDE
     Dosage: UNK
  10. TERAZOSIN [Concomitant]
     Active Substance: TERAZOSIN HYDROCHLORIDE
     Dosage: UNK
  11. TYLENOL [Concomitant]
     Active Substance: ACETAMINOPHEN
     Dosage: UNK
  12. VITAMIN D3 [Concomitant]
     Active Substance: CHOLECALCIFEROL
     Dosage: UNK
  13. MONTELUKAST SODIUM [Concomitant]
     Active Substance: MONTELUKAST SODIUM
     Dosage: UNK
  14. ELIQUIS [Concomitant]
     Active Substance: APIXABAN
     Dosage: UNK
  15. XANAX [Concomitant]
     Active Substance: ALPRAZOLAM
     Dosage: UNK
  16. DEXAMETHASONE [Concomitant]
     Active Substance: DEXAMETHASONE
     Dosage: UNK
  17. LIPITOR [Concomitant]
     Active Substance: ATORVASTATIN CALCIUM
     Dosage: UNK
  18. AZELASTINE [Concomitant]
     Active Substance: AZELASTINE
     Dosage: UNK
  19. FLUOXETINE [Concomitant]
     Active Substance: FLUOXETINE HYDROCHLORIDE
     Dosage: UNK
  20. VITAMIN B12 [Concomitant]
     Active Substance: CYANOCOBALAMIN
     Dosage: UNK
  21. CALCIUM WITH D3 [Concomitant]

REACTIONS (9)
  - Foot operation [Unknown]
  - Dysphonia [Not Recovered/Not Resolved]
  - Dry eye [Not Recovered/Not Resolved]
  - Arthritis [Not Recovered/Not Resolved]
  - Visual impairment [Unknown]
  - Fatigue [Unknown]
  - Influenza like illness [Recovered/Resolved]
  - Joint injury [Unknown]
  - Diarrhoea [Unknown]

NARRATIVE: CASE EVENT DATE: 20210911
